FAERS Safety Report 5137179-2 (Version None)
Quarter: 2006Q4

REPORT INFORMATION
  Report Type: 
  Country: None (occurrence: None)
  Receive Date: 20061030
  Receipt Date: 20050908
  Transmission Date: 20070319
  Serious: No
  Sender: FDA-Public Use
  Company Number: US-GLAXOSMITHKLINE-A0573483A

PATIENT
  Age: 73 Year
  Sex: Female

DRUGS (10)
  1. ADVAIR HFA [Suspect]
     Indication: ASTHMA
     Route: 055
     Dates: start: 20050101
  2. SEREVENT [Suspect]
  3. COREG [Concomitant]
  4. K-DUR 10 [Concomitant]
  5. LASIX [Concomitant]
  6. SINGULAIR [Concomitant]
  7. ASPIRIN [Concomitant]
  8. EFFEXOR XR [Concomitant]
  9. ACTONEL [Concomitant]
  10. ATIVAN [Concomitant]

REACTIONS (1)
  - ORAL CANDIDIASIS [None]
